FAERS Safety Report 10444187 (Version 1)
Quarter: 2014Q3

REPORT INFORMATION
  Report Type: Spontaneous
  Country: GB (occurrence: GB)
  Receive Date: 20140910
  Receipt Date: 20140910
  Transmission Date: 20150326
  Serious: Yes (Hospitalization)
  Sender: FDA-Public Use
  Company Number: GB-NOVOPROD-421155

PATIENT
  Age: 86 Year
  Sex: Male

DRUGS (2)
  1. INSULATARD INNOLET [Suspect]
     Active Substance: INSULIN HUMAN
     Indication: TYPE 2 DIABETES MELLITUS
     Dosage: 52 IU
     Route: 065
  2. INSULATARD INNOLET [Suspect]
     Active Substance: INSULIN HUMAN
     Dosage: 46 IU
     Route: 065

REACTIONS (4)
  - Hyperglycaemic hyperosmolar nonketotic syndrome [Unknown]
  - Diabetic ketoacidosis [Unknown]
  - Blood glucose increased [Unknown]
  - Diabetes mellitus inadequate control [Unknown]

NARRATIVE: CASE EVENT DATE: 20140830
